FAERS Safety Report 10181574 (Version 3)
Quarter: 2014Q2

REPORT INFORMATION
  Report Type: Spontaneous
  Country: FR (occurrence: FR)
  Receive Date: 20140519
  Receipt Date: 20140626
  Transmission Date: 20141212
  Serious: Yes (Life-Threatening, Hospitalization)
  Sender: FDA-Public Use
  Company Number: FR-PFIZER INC-2014131427

PATIENT
  Age: 70 Year
  Sex: Male

DRUGS (11)
  1. INLYTA [Suspect]
     Indication: METASTATIC RENAL CELL CARCINOMA
     Dosage: 5 MG, 2X/DAY
     Route: 048
     Dates: start: 20140310, end: 20140405
  2. TARDYFERON [Concomitant]
  3. ALLOPURINOL [Concomitant]
  4. CIBADREX [Concomitant]
  5. TENORMINE [Concomitant]
  6. KARDEGIC [Concomitant]
  7. GAVISCON [Concomitant]
  8. PRAVASTATIN [Concomitant]
  9. DEDROGYL [Concomitant]
  10. ALPRAZOLAM [Concomitant]
  11. CYSTINE B6 [Concomitant]

REACTIONS (1)
  - Posterior reversible encephalopathy syndrome [Recovering/Resolving]
